FAERS Safety Report 13744017 (Version 5)
Quarter: 2018Q1

REPORT INFORMATION
  Report Type: Report from Study
  Country: US (occurrence: US)
  Receive Date: 20170712
  Receipt Date: 20180129
  Transmission Date: 20180508
  Serious: Yes (Death, Hospitalization, Other)
  Sender: FDA-Public Use
  Company Number: US-ROCHE-1959821

PATIENT
  Age: 69 Year
  Sex: Male
  Weight: 89.89 kg

DRUGS (3)
  1. OCREVUS [Suspect]
     Active Substance: OCRELIZUMAB
     Indication: MULTIPLE SCLEROSIS
     Route: 042
     Dates: start: 20170627, end: 20170911
  2. OCREVUS [Suspect]
     Active Substance: OCRELIZUMAB
     Dosage: INFUSE 300 MG IV X1 FOLLOWED BY 300MG IV
     Route: 042
  3. OCREVUS [Suspect]
     Active Substance: OCRELIZUMAB
     Dosage: INDUSE 600MG IV Q6 MONTHS
     Route: 042

REACTIONS (17)
  - Urinary tract infection [Recovered/Resolved]
  - Sensory loss [Unknown]
  - Peripheral swelling [Unknown]
  - Ear haemorrhage [Unknown]
  - Muscular weakness [Unknown]
  - Paraesthesia [Unknown]
  - Dizziness [Unknown]
  - Confusional state [Unknown]
  - Pyrexia [Fatal]
  - Chest pain [Fatal]
  - Pain in extremity [Unknown]
  - Dysstasia [Unknown]
  - Asthenia [Fatal]
  - Decreased appetite [Fatal]
  - Gait disturbance [Unknown]
  - Fall [Unknown]
  - Inappropriate schedule of drug administration [Unknown]

NARRATIVE: CASE EVENT DATE: 20170630
